FAERS Safety Report 10703655 (Version 1)
Quarter: 2015Q1

REPORT INFORMATION
  Report Type: Spontaneous
  Country: US (occurrence: None)
  Receive Date: 20150108
  Receipt Date: 20150108
  Transmission Date: 20150721
  Serious: Yes (Hospitalization)
  Sender: FDA-Public Use
  Company Number: PR 2870

PATIENT
  Age: 59 Year
  Sex: Female

DRUGS (5)
  1. COSOPT [Suspect]
     Active Substance: DORZOLAMIDE HYDROCHLORIDE\TIMOLOL MALEATE
     Indication: TOXOPLASMOSIS
     Dates: start: 20141106, end: 20141116
  2. TRIMETHOPRIM (BACTRIM FORTE) [Concomitant]
  3. PREDNISONE (CORTANCYL) [Concomitant]
  4. SULFAMETHOXAZOLE [Concomitant]
     Active Substance: SULFAMETHOXAZOLE
  5. ATROPINE [Concomitant]
     Active Substance: ATROPINE

REACTIONS (11)
  - Eosinophilia [None]
  - Gastric disorder [None]
  - Eyelid oedema [None]
  - Toxic skin eruption [None]
  - Dermatitis exfoliative [None]
  - Vomiting [None]
  - Dyspnoea [None]
  - Conjunctivitis [None]
  - Sensory disturbance [None]
  - Burning sensation [None]
  - Sense of oppression [None]

NARRATIVE: CASE EVENT DATE: 20141110
